FAERS Safety Report 4435189-1 (Version None)
Quarter: 2004Q3

REPORT INFORMATION
  Report Type: 
  Country: None (occurrence: None)
  Receive Date: 20040827
  Receipt Date: 20040616
  Transmission Date: 20050211
  Serious: Yes (Hospitalization, Disabling)
  Sender: FDA-Public Use
  Company Number: US-ROCHE-371400

PATIENT
  Age: 51 Year
  Sex: Female
  Weight: 84.4 kg

DRUGS (2)
  1. XELODA [Suspect]
     Indication: BREAST CANCER
     Route: 048
     Dates: start: 20040526, end: 20040530
  2. ZOFRAN [Concomitant]
     Route: 048

REACTIONS (10)
  - ABASIA [None]
  - ATAXIA [None]
  - CEREBELLAR SYNDROME [None]
  - DEMYELINATION [None]
  - DIZZINESS [None]
  - FATIGUE [None]
  - NERVOUS SYSTEM DISORDER [None]
  - READING DISORDER [None]
  - VERTIGO [None]
  - VOMITING [None]
